FAERS Safety Report 7148942-0 (Version None)
Quarter: 2010Q4

REPORT INFORMATION
  Report Type: 
  Country: None (occurrence: None)
  Receive Date: 20101209
  Receipt Date: 20101201
  Transmission Date: 20110411
  Serious: Yes (Hospitalization)
  Sender: FDA-Public Use
  Company Number: A0898668A

PATIENT
  Age: 47 Year
  Sex: Female

DRUGS (1)
  1. ADVAIR [Suspect]
     Dosage: 115MCG UNKNOWN
     Route: 055

REACTIONS (1)
  - ADVERSE EVENT [None]
